FAERS Safety Report 26067382 (Version 1)
Quarter: 2025Q4

REPORT INFORMATION
  Report Type: Spontaneous
  Country: JP (occurrence: JP)
  Receive Date: 20251120
  Receipt Date: 20251120
  Transmission Date: 20260118
  Serious: Yes (Hospitalization, Other)
  Sender: UNITED THERAPEUTICS
  Company Number: JP-UNITED THERAPEUTICS-UNT-2025-027866

PATIENT
  Age: 76 Year
  Sex: Male

DRUGS (1)
  1. TREPROSTINIL [Suspect]
     Active Substance: TREPROSTINIL
     Indication: Idiopathic interstitial pneumonia
     Dosage: 24 ?G, QID
     Dates: start: 20250723, end: 20250920

REACTIONS (4)
  - Cerebral infarction [Unknown]
  - Cough [Unknown]
  - Idiopathic interstitial pneumonia [Unknown]
  - Off label use [Recovered/Resolved]

NARRATIVE: CASE EVENT DATE: 20250101
